FAERS Safety Report 5108800-X (Version None)
Quarter: 2006Q3

REPORT INFORMATION
  Report Type: 
  Country: None (occurrence: None)
  Receive Date: 20060920
  Receipt Date: 20060809
  Transmission Date: 20061208
  Serious: Yes (Death)
  Sender: FDA-Public Use
  Company Number: PHMT2006CA01639

PATIENT
  Age: 52 Year
  Sex: Male

DRUGS (3)
  1. CLOZARIL [Suspect]
     Indication: SCHIZOPHRENIA
     Dosage: 550 MG, QHS
     Route: 048
     Dates: start: 20020814, end: 20060803
  2. PARIET [Concomitant]
     Dosage: 10 MG, QD
  3. IRON SUPPLEMENTS [Concomitant]
     Dosage: UNK, PRN

REACTIONS (3)
  - ANAEMIA [None]
  - CARDIAC ARREST [None]
  - EAR INFECTION [None]
